FAERS Safety Report 23691739 (Version 1)
Quarter: 2024Q2

REPORT INFORMATION
  Report Type: Spontaneous
  Country: JP (occurrence: JP)
  Receive Date: 20240401
  Receipt Date: 20240401
  Transmission Date: 20240715
  Serious: Yes (Other)
  Sender: FDA-Public Use
  Company Number: JP-MYLANLABS-2024M1026923

PATIENT
  Age: 58 Year
  Sex: Male
  Weight: 86.3 kg

DRUGS (5)
  1. VANCOMYCIN HYDROCHLORIDE [Interacting]
     Active Substance: VANCOMYCIN HYDROCHLORIDE
     Indication: Diverticulitis
     Dosage: 2 GRAM, QD
     Route: 042
     Dates: start: 20240214, end: 20240214
  2. VANCOMYCIN HYDROCHLORIDE [Interacting]
     Active Substance: VANCOMYCIN HYDROCHLORIDE
     Dosage: 1 GRAM, QD
     Route: 042
     Dates: start: 20240215, end: 20240215
  3. ZOSYN [Interacting]
     Active Substance: PIPERACILLIN SODIUM\TAZOBACTAM SODIUM
     Indication: Diverticulitis
     Dosage: UNK
     Route: 042
     Dates: start: 20240213, end: 20240215
  4. LOXOPROFEN SODIUM [Suspect]
     Active Substance: LOXOPROFEN SODIUM
     Indication: Product used for unknown indication
     Dosage: UNK
     Route: 048
     Dates: start: 20240214, end: 20240215
  5. METFORMIN HYDROCHLORIDE [Concomitant]
     Active Substance: METFORMIN HYDROCHLORIDE
     Indication: Product used for unknown indication
     Dosage: UNK
     Route: 048

REACTIONS (2)
  - Drug interaction [Unknown]
  - Renal impairment [Unknown]

NARRATIVE: CASE EVENT DATE: 20240214
